FAERS Safety Report 10017585 (Version 2)
Quarter: 2014Q1

REPORT INFORMATION
  Report Type: Spontaneous
  Country: US (occurrence: US)
  Receive Date: 20140318
  Receipt Date: 20140318
  Transmission Date: 20141002
  Serious: No
  Sender: FDA-Public Use
  Company Number: US-BRISTOL-MYERS SQUIBB COMPANY-17365289

PATIENT
  Age: 82 Year
  Sex: Male
  Weight: 62.58 kg

DRUGS (7)
  1. ERBITUX [Suspect]
     Indication: LIP SQUAMOUS CELL CARCINOMA
     Dosage: LOADING DOSE: 700MG ON 28JAN2013?440MG ON 05FEB2013,13FEB2013,20FEB2013.?INT ON 27FEB2013
     Route: 042
     Dates: start: 20130128
  2. CISPLATIN [Concomitant]
     Route: 042
  3. MANNITOL [Concomitant]
     Route: 042
  4. ALOXI [Concomitant]
     Indication: PREMEDICATION
     Route: 042
  5. BENADRYL [Concomitant]
     Indication: PREMEDICATION
     Route: 042
  6. PEPCID [Concomitant]
     Indication: PREMEDICATION
     Route: 042
  7. LORTAB [Concomitant]
     Dosage: 1DF: 7.5/500 UNITS NOS?EVERY 3-4HOURS
     Dates: start: 20130220

REACTIONS (2)
  - Rash [Unknown]
  - Chills [Unknown]
